FAERS Safety Report 24395424 (Version 2)
Quarter: 2025Q3

REPORT INFORMATION
  Report Type: Spontaneous
  Country: CN (occurrence: CN)
  Receive Date: 20241004
  Receipt Date: 20250802
  Transmission Date: 20251020
  Serious: Yes (Other)
  Sender: ALEXION PHARMACEUTICALS
  Company Number: CN-ASTRAZENECA-202409CHN008049CN

PATIENT
  Age: 65 Year
  Sex: Male
  Weight: 65 kg

DRUGS (4)
  1. DAPAGLIFLOZIN [Suspect]
     Active Substance: DAPAGLIFLOZIN
     Indication: Diabetes mellitus
     Dosage: 10 MILLIGRAM, QD
     Dates: start: 20240905, end: 20240915
  2. LEVOFLOXACIN [Concomitant]
     Active Substance: LEVOFLOXACIN
     Indication: Conjunctivitis
     Dosage: 0.02 DOSAGE FORM, BID
     Dates: start: 20240905, end: 20240915
  3. CARTEOLOL HYDROCHLORIDE [Concomitant]
     Active Substance: CARTEOLOL HYDROCHLORIDE
     Indication: Glaucoma
     Dosage: 0.01 DOSAGE FORM, BID
     Dates: start: 20240905, end: 20240915
  4. VALSARTAN [Concomitant]
     Active Substance: VALSARTAN
     Indication: Hypertension
     Dosage: 1 DOSAGE FORM, QD
     Dates: start: 20240905, end: 20240915

REACTIONS (2)
  - Genital erythema [Recovered/Resolved]
  - Swelling [Recovered/Resolved]

NARRATIVE: CASE EVENT DATE: 20240905
